FAERS Safety Report 8901564 (Version 1)
Quarter: 2012Q4

REPORT INFORMATION
  Report Type: Spontaneous
  Country: US (occurrence: None)
  Receive Date: 20121108
  Receipt Date: 20121108
  Transmission Date: 20130627
  Serious: No
  Sender: FDA-Public Use
  Company Number: None

PATIENT
  Age: 55 Year
  Sex: Female
  Weight: 113.4 kg

DRUGS (1)
  1. ENBREL 50 MG [Suspect]
     Dosage: once week

REACTIONS (3)
  - Muscle spasms [None]
  - Muscle disorder [None]
  - Myalgia [None]
